FAERS Safety Report 24803138 (Version 1)
Quarter: 2025Q1

REPORT INFORMATION
  Report Type: Report from Study
  Country: CA (occurrence: CA)
  Receive Date: 20250103
  Receipt Date: 20250103
  Transmission Date: 20250408
  Serious: Yes (Other)
  Sender: CELLTRION
  Company Number: CA-CELLTRION INC.-2024CA028739

PATIENT

DRUGS (3)
  1. ADALIMUMAB-AATY [Suspect]
     Active Substance: ADALIMUMAB-AATY
     Indication: Rheumatoid arthritis
     Dosage: 40 MG EVERY 2 WEEKS
     Route: 058
     Dates: start: 20240408
  2. SULFASALAZINE [Concomitant]
     Active Substance: SULFASALAZINE
     Dates: start: 2023
  3. VITAMINS NOS [Concomitant]
     Active Substance: VITAMINS

REACTIONS (3)
  - Rheumatoid arthritis [Not Recovered/Not Resolved]
  - Disease recurrence [Not Recovered/Not Resolved]
  - Drug ineffective [Not Recovered/Not Resolved]
